FAERS Safety Report 18555735 (Version 6)
Quarter: 2022Q1

REPORT INFORMATION
  Report Type: Spontaneous
  Country: US (occurrence: US)
  Receive Date: 20201127
  Receipt Date: 20220110
  Transmission Date: 20220424
  Serious: Yes (Other)
  Sender: FDA-Public Use
  Company Number: US-PFIZER INC-2020399542

PATIENT
  Age: 56 Year
  Sex: Female

DRUGS (1)
  1. XELJANZ [Suspect]
     Active Substance: TOFACITINIB CITRATE
     Indication: Rheumatoid arthritis
     Dosage: 5 MG, 2X/DAY
     Route: 048
     Dates: start: 20201008

REACTIONS (10)
  - Rheumatoid arthritis [Unknown]
  - Drug ineffective [Unknown]
  - Pain [Unknown]
  - Musculoskeletal stiffness [Unknown]
  - Swelling [Unknown]
  - Weight decreased [Unknown]
  - Stress [Unknown]
  - Depression [Unknown]
  - Discouragement [Unknown]
  - Product dose omission in error [Unknown]
